FAERS Safety Report 5796226-5 (Version None)
Quarter: 2008Q3

REPORT INFORMATION
  Report Type: 
  Country: None (occurrence: None)
  Receive Date: 20080701
  Receipt Date: 20080625
  Transmission Date: 20090109
  Serious: Yes (Other)
  Sender: FDA-Public Use
  Company Number: GB-ROCHE-572598

PATIENT
  Sex: Female
  Weight: 95.3 kg

DRUGS (7)
  1. ORLISTAT [Suspect]
     Indication: OBESITY
     Route: 048
     Dates: start: 20080211
  2. ASPIRIN [Concomitant]
     Indication: ANTICOAGULANT THERAPY
     Route: 048
  3. ALLOPURINOL [Concomitant]
     Route: 048
  4. COLCHICINE [Concomitant]
     Indication: GOUT
     Route: 048
  5. PRAVASTATIN [Concomitant]
     Route: 048
  6. PREGABALIN [Concomitant]
     Indication: GOUT
     Route: 048
  7. RANITIDINE HCL [Concomitant]
     Route: 048

REACTIONS (3)
  - CHEST DISCOMFORT [None]
  - DYSPEPSIA [None]
  - MYOCARDIAL INFARCTION [None]
